FAERS Safety Report 4893777-2 (Version None)
Quarter: 2005Q4

REPORT INFORMATION
  Report Type: 
  Country: None (occurrence: None)
  Receive Date: 20051223
  Receipt Date: 20051128
  Transmission Date: 20060501
  Serious: No
  Sender: FDA-Public Use
  Company Number: 2005PV004996

PATIENT
  Age: 64 Year
  Sex: Male

DRUGS (4)
  1. SYMLIN [Suspect]
     Indication: DIABETES MELLITUS NON-INSULIN-DEPENDENT
     Dosage: 120 MCG; TID; SC; SEE IMAGE
     Route: 058
     Dates: start: 20051114, end: 20051118
  2. SYMLIN [Suspect]
     Indication: DIABETES MELLITUS NON-INSULIN-DEPENDENT
     Dosage: 120 MCG; TID; SC; SEE IMAGE
     Route: 058
     Dates: start: 20051119
  3. HUMALOG [Concomitant]
  4. LANTUS [Concomitant]

REACTIONS (3)
  - ARTHRALGIA [None]
  - BLOOD GLUCOSE INCREASED [None]
  - SHOULDER PAIN [None]
